FAERS Safety Report 9804604 (Version 1)
Quarter: 2014Q1

REPORT INFORMATION
  Report Type: Spontaneous
  Country: US (occurrence: US)
  Receive Date: 20140108
  Receipt Date: 20140108
  Transmission Date: 20141002
  Serious: No
  Sender: FDA-Public Use
  Company Number: US-ENDO PHARMACEUTICALS INC.-HCDA20130020

PATIENT
  Sex: Male

DRUGS (4)
  1. HYDROCODONE/ACETAMINOPHEN 7.5MG/500MG [Suspect]
     Indication: PAIN
     Dosage: 7.5/500 MG
     Route: 048
     Dates: start: 20121229
  2. HYDROCODONE/ACETAMINOPHEN 7.5MG/500MG [Suspect]
     Dosage: 7.5/500 MG
     Route: 048
     Dates: start: 20130102
  3. HYDROCODONE/ACETAMINOPHEN 10MG/500MG [Concomitant]
     Indication: PAIN
     Dosage: 10/500 MG
     Route: 048
     Dates: start: 20121122, end: 2012
  4. HYDROCODONE/ACETAMINOPHEN 10MG/500MG [Concomitant]
     Dosage: 10/500 MG
     Route: 048
     Dates: end: 20130102

REACTIONS (4)
  - Cough [Not Recovered/Not Resolved]
  - Tongue disorder [Not Recovered/Not Resolved]
  - Dyspnoea [Recovered/Resolved]
  - Drug ineffective [Unknown]
